FAERS Safety Report 9749756 (Version 1)
Quarter: 2013Q4

REPORT INFORMATION
  Report Type: Spontaneous
  Country: IT (occurrence: IT)
  Receive Date: 20131212
  Receipt Date: 20131212
  Transmission Date: 20140711
  Serious: Yes (Hospitalization)
  Sender: FDA-Public Use
  Company Number: IT-TEVA-448555ISR

PATIENT
  Age: 82 Year
  Sex: Male

DRUGS (6)
  1. FLUOROURACILE TEVA [Suspect]
     Indication: GASTRIC CANCER
     Dosage: 500 MILLIGRAM DAILY;
     Route: 042
     Dates: start: 20131116, end: 20131117
  2. FLUOROURACILE TEVA [Suspect]
     Dosage: 1500 MILLIGRAM DAILY;
     Dates: start: 20131116, end: 20131118
  3. PRITORPLUS 80/12.5 MG [Concomitant]
  4. LASIX 25 MG [Concomitant]
  5. CLEXANE 4000 IU [Concomitant]
  6. LANSOPRAZOLO ABC 30 MG [Concomitant]
     Dosage: GASTRORESISTANT HARD CAPSULES

REACTIONS (6)
  - Anaemia [Recovering/Resolving]
  - Ecchymosis [Recovering/Resolving]
  - Hypotension [Recovering/Resolving]
  - Melaena [Recovering/Resolving]
  - Rectal haemorrhage [Recovering/Resolving]
  - Thrombocytopenia [Recovering/Resolving]
